FAERS Safety Report 18998517 (Version 1)
Quarter: 2021Q1

REPORT INFORMATION
  Report Type: Spontaneous
  Country: SK (occurrence: SK)
  Receive Date: 20210312
  Receipt Date: 20210312
  Transmission Date: 20210420
  Serious: Yes (Death, Other)
  Sender: FDA-Public Use
  Company Number: SK-AMGEN-SVKSP2021033201

PATIENT
  Age: 58 Year
  Sex: Male

DRUGS (4)
  1. ADRIAMYCIN [Concomitant]
     Active Substance: DOXORUBICIN HYDROCHLORIDE
     Indication: METASTASES TO LUNG
     Dosage: UNK UNK, Q3WK
  2. IFOSFAMIDE. [Concomitant]
     Active Substance: IFOSFAMIDE
     Indication: METASTASES TO LUNG
     Dosage: UNK UNK, Q3WK
  3. PEGFILGRASTIM [Suspect]
     Active Substance: PEGFILGRASTIM
     Indication: PROPHYLAXIS
     Dosage: UNK UNK, Q3WK
     Route: 065
  4. VINCRISTIN [Concomitant]
     Active Substance: VINCRISTINE
     Indication: METASTASES TO LUNG
     Dosage: UNK UNK, Q3WK

REACTIONS (5)
  - Metastases to lung [Unknown]
  - Pneumonia [Unknown]
  - Death [Fatal]
  - Leukopenia [Unknown]
  - Neutropenia [Unknown]
